FAERS Safety Report 16365159 (Version 1)
Quarter: 2019Q2

REPORT INFORMATION
  Report Type: Spontaneous
  Country: US (occurrence: US)
  Receive Date: 20190529
  Receipt Date: 20190529
  Transmission Date: 20190711
  Serious: Yes (Other)
  Sender: FDA-Public Use
  Company Number: US-HIKMA PHARMACEUTICALS USA INC.-US-H14001-19-03397

PATIENT
  Age: 5 Year
  Sex: Male

DRUGS (11)
  1. IMMUNOGLOBULINE [Suspect]
     Active Substance: HUMAN IMMUNOGLOBULIN G
     Indication: ENCEPHALITIS AUTOIMMUNE
     Route: 042
  2. FOSPHENYTOIN [Suspect]
     Active Substance: FOSPHENYTOIN
     Indication: STATUS EPILEPTICUS
     Dosage: MG/KG/D
     Route: 065
  3. LEVETIRACETAM. [Suspect]
     Active Substance: LEVETIRACETAM
     Indication: STATUS EPILEPTICUS
     Dosage: MG/KG/D
     Route: 065
  4. CYCLOPHOSPHAMIDE. [Suspect]
     Active Substance: CYCLOPHOSPHAMIDE
     Indication: ENCEPHALITIS AUTOIMMUNE
     Route: 065
  5. RITUXIMAB. [Suspect]
     Active Substance: RITUXIMAB
     Indication: ENCEPHALITIS AUTOIMMUNE
     Route: 065
  6. PHENOBARBITAL. [Suspect]
     Active Substance: PHENOBARBITAL
     Dosage: MG/KG/H
     Route: 065
  7. KETAMINE [Suspect]
     Active Substance: KETAMINE
     Indication: STATUS EPILEPTICUS
     Dosage: MG/KG/H
     Route: 065
  8. MIDAZOLAM [Suspect]
     Active Substance: MIDAZOLAM HYDROCHLORIDE
     Indication: STATUS EPILEPTICUS
     Dosage: MG/KG/H
     Route: 065
  9. PROPOFOL. [Suspect]
     Active Substance: PROPOFOL
     Indication: STATUS EPILEPTICUS
     Dosage: MICROG/KG/MIN
     Route: 065
  10. PHENOBARBITAL. [Suspect]
     Active Substance: PHENOBARBITAL
     Indication: STATUS EPILEPTICUS
     Dosage: MG/KG/H
     Route: 065
  11. PENTOBARBITAL. [Suspect]
     Active Substance: PENTOBARBITAL
     Indication: STATUS EPILEPTICUS
     Dosage: MG/KG/H
     Route: 065

REACTIONS (1)
  - Drug reaction with eosinophilia and systemic symptoms [Recovered/Resolved]
